FAERS Safety Report 21356113 (Version 1)
Quarter: 2022Q3

REPORT INFORMATION
  Report Type: Spontaneous
  Country: IT (occurrence: IT)
  Receive Date: 20220920
  Receipt Date: 20220920
  Transmission Date: 20221027
  Serious: Yes (Hospitalization, Other)
  Sender: FDA-Public Use
  Company Number: IT-JUBILANT CADISTA PHARMACEUTICALS-2022JUB00282

PATIENT
  Age: 93 Year
  Sex: Female

DRUGS (13)
  1. PANTOPRAZOLE SODIUM [Suspect]
     Active Substance: PANTOPRAZOLE SODIUM
     Indication: Product used for unknown indication
     Dosage: 40 MG, 1X/DAY
     Route: 065
  2. AMLODIPINE [Suspect]
     Active Substance: AMLODIPINE BESYLATE
     Indication: Product used for unknown indication
     Dosage: 10 MG, 1X/DAY
     Route: 065
  3. ASPIRIN [Suspect]
     Active Substance: ASPIRIN
     Indication: Product used for unknown indication
     Dosage: 30 MG, 1X/DAY
     Route: 065
  4. ASPIRIN [Suspect]
     Active Substance: ASPIRIN
     Dosage: 100 MG, 1X/DAY
  5. SIMVASTATIN [Suspect]
     Active Substance: SIMVASTATIN
     Indication: Product used for unknown indication
     Dosage: 20 MG, EVERY 48 HOURS
     Route: 065
  6. SIMVASTATIN [Suspect]
     Active Substance: SIMVASTATIN
     Dosage: 40 MG, 1X/DAY
     Route: 065
  7. SIMVASTATIN [Suspect]
     Active Substance: SIMVASTATIN
     Dosage: 20 MG, 2X/DAY
     Route: 065
  8. CLOPIDOGREL [Suspect]
     Active Substance: CLOPIDOGREL BISULFATE
     Indication: Product used for unknown indication
     Dosage: 75 MG, 1X/DAY
     Route: 065
  9. METOPROLOL [Concomitant]
     Active Substance: METOPROLOL
     Indication: Product used for unknown indication
     Dosage: 100 MG, 1X/DAY
     Route: 065
  10. METOPROLOL [Concomitant]
     Active Substance: METOPROLOL
     Dosage: 25 MG, 1X/DAY
     Route: 065
  11. LOSARTAN [Concomitant]
     Active Substance: LOSARTAN
     Indication: Product used for unknown indication
     Dosage: 0.5 DOSAGE FORM, 1X/DAY (50 1/2 CP A DAY)
     Route: 065
  12. ISOSORBIDE MONONITRATE [Concomitant]
     Active Substance: ISOSORBIDE MONONITRATE
     Indication: Product used for unknown indication
     Dosage: 20 MG, 2X/DAY
     Route: 065
  13. LEVOTHYROXINE [Concomitant]
     Active Substance: LEVOTHYROXINE
     Indication: Product used for unknown indication
     Dosage: 1 DOSAGE FORM (75 1 CP)
     Route: 065

REACTIONS (10)
  - Rash erythematous [Recovered/Resolved]
  - Sodium retention [Recovered/Resolved]
  - Mitral valve incompetence [Recovered/Resolved]
  - Cardiorenal syndrome [Recovering/Resolving]
  - Pulmonary oedema [Recovered/Resolved]
  - Cardiac failure acute [Recovered/Resolved]
  - Pulmonary oedema [Recovered/Resolved]
  - Condition aggravated [Recovered/Resolved]
  - Mitral valve stenosis [Recovered/Resolved]
  - Renal failure [Recovering/Resolving]
